FAERS Safety Report 5216683-2 (Version None)
Quarter: 2007Q1

REPORT INFORMATION
  Report Type: 
  Country: None (occurrence: None)
  Receive Date: 20061130
  Receipt Date: 20060808
  Transmission Date: 20070707
  Serious: Yes (Hospitalization)
  Sender: FDA-Public Use
  Company Number: US200604004275

PATIENT
  Age: 59 Year
  Sex: Female
  Weight: 74.4 kg

DRUGS (8)
  1. ZYPREXA ZYDIS [Suspect]
     Indication: SCHIZOPHRENIA
     Dosage: 20 MG, DAILY (1/D), ORAL
     Route: 048
     Dates: end: 20060501
  2. HALDOL SOLUTAB [Concomitant]
  3. DEPAKOTE [Concomitant]
  4. BENADRYL (AMMONIUM CHLORIDE, DIPHENHYDRAMINE HYDROCHLORIDE, MENTHOL, S [Concomitant]
  5. DARVOCET-N 100 [Concomitant]
  6. TRAMADOL HCL [Concomitant]
  7. ANTIPSYCHOTICS [Concomitant]
  8. LAMISIL /00992602/ (TERBINAFINE HYDROCHLORIDE) [Concomitant]

REACTIONS (12)
  - ABDOMINAL DISCOMFORT [None]
  - ASTHENIA [None]
  - BACK PAIN [None]
  - BLOOD CHOLESTEROL INCREASED [None]
  - BLOOD TRIGLYCERIDES INCREASED [None]
  - DEHYDRATION [None]
  - DIABETES MELLITUS NON-INSULIN-DEPENDENT [None]
  - HYPERGLYCAEMIA [None]
  - NIGHT SWEATS [None]
  - POLYDIPSIA [None]
  - POLYURIA [None]
  - WEIGHT DECREASED [None]
